FAERS Safety Report 6762290-X (Version None)
Quarter: 2010Q2

REPORT INFORMATION
  Report Type: 
  Country: None (occurrence: None)
  Receive Date: 20100609
  Receipt Date: 20100601
  Transmission Date: 20101027
  Serious: Yes (Disabling, Other)
  Sender: FDA-Public Use
  Company Number: US-BAYER-201016153BCC

PATIENT
  Age: 63 Year
  Sex: Female
  Weight: 82 kg

DRUGS (4)
  1. NEO-SYNEPHRINE REGULAR STRENGTH NASAL SPRAY [Suspect]
     Indication: NASOPHARYNGITIS
     Dosage: TOTAL DAILY DOSE: 2 DF  UNIT DOSE: 1 DF
     Route: 045
     Dates: start: 20100519
  2. METFORMIN HCL [Concomitant]
     Route: 065
  3. RANITIDINE [Concomitant]
     Route: 065
  4. THERA-FLU [Concomitant]
     Route: 065

REACTIONS (2)
  - ANOSMIA [None]
  - NASOPHARYNGITIS [None]
